FAERS Safety Report 15347894 (Version 1)
Quarter: 2018Q4

REPORT INFORMATION
  Report Type: Spontaneous
  Country: US (occurrence: US)
  Receive Date: 20180904
  Receipt Date: 20180904
  Transmission Date: 20190204
  Serious: Yes (Other)
  Sender: FDA-Public Use
  Company Number: US-ASSERTIO THERAPEUTICS, INC.-US-2018DEP001718

PATIENT
  Age: 65 Year
  Sex: Male

DRUGS (2)
  1. GRALISE [Suspect]
     Active Substance: GABAPENTIN
     Dosage: 1200 MG, QD
     Route: 048
     Dates: start: 201808
  2. GRALISE [Suspect]
     Active Substance: GABAPENTIN
     Indication: PERIPHERAL VASCULAR DISORDER
     Dosage: 1800 MG, QD
     Route: 048
     Dates: start: 20180720, end: 201808

REACTIONS (2)
  - Infertility [Unknown]
  - Product use in unapproved indication [Unknown]

NARRATIVE: CASE EVENT DATE: 20180720
